FAERS Safety Report 5470905-1 (Version None)
Quarter: 2007Q3

REPORT INFORMATION
  Report Type: 
  Country: None (occurrence: None)
  Receive Date: 20070925
  Receipt Date: 20070913
  Transmission Date: 20080115
  Serious: Yes (Other)
  Sender: FDA-Public Use
  Company Number: B0488127A

PATIENT
  Age: 37 Year
  Sex: Female

DRUGS (2)
  1. PROCHLORPERAZINE [Suspect]
     Indication: HYPEREMESIS GRAVIDARUM
     Dosage: 12.5 MG, SEE DOSAGE TEXT; INTRAMUSCULAR
     Route: 030
  2. CITALOPRAM (FORMULATION UNKNOWN) (CITALOPRAM) [Suspect]
     Indication: DEPRESSION
     Dosage: SEE DOSAGE TEXT;

REACTIONS (9)
  - AGITATION [None]
  - ANXIETY [None]
  - DRUG EXPOSURE DURING PREGNANCY [None]
  - DRUG WITHDRAWAL SYNDROME [None]
  - DYSTONIA [None]
  - HYPEREMESIS GRAVIDARUM [None]
  - MUSCLE SPASMS [None]
  - PREGNANCY [None]
  - SUICIDAL IDEATION [None]
